FAERS Safety Report 7798418-2 (Version None)
Quarter: 2011Q4

REPORT INFORMATION
  Report Type: 
  Country: None (occurrence: None)
  Receive Date: 20111005
  Receipt Date: 20101221
  Transmission Date: 20120403
  Serious: No
  Sender: FDA-Public Use
  Company Number: US-BAYER-2010-008397

PATIENT
  Age: 58 Year
  Sex: Male

DRUGS (7)
  1. OMEPRAZOLE [Concomitant]
     Indication: PRODUCT USED FOR UNKNOWN INDICATION
     Dosage: UNK UNK, QD
  2. HYDROCHLOROTHIAZIDE [Concomitant]
     Indication: HYPERTENSION
     Dosage: UNK UNK, QD
  3. HYDROCODONE BITARTRATE [Concomitant]
     Indication: PAIN
     Dosage: UNK UNK, QD
  4. LEVITRA [Suspect]
     Indication: ERECTILE DYSFUNCTION
     Dosage: 20 MG, UNK
     Route: 048
     Dates: start: 20101217, end: 20101217
  5. AZOR [Concomitant]
     Indication: HYPERTENSION
     Dosage: UNK UNK, QD
  6. NEBIVOLOL HCL [Concomitant]
     Indication: HYPERTENSION
     Dosage: UNK UNK, QD
  7. LOVASTATIN [Concomitant]
     Indication: BLOOD CHOLESTEROL INCREASED
     Dosage: UNK UNK, QD

REACTIONS (2)
  - BACK PAIN [None]
  - PAIN IN EXTREMITY [None]
